FAERS Safety Report 6282251-7 (Version None)
Quarter: 2009Q3

REPORT INFORMATION
  Report Type: 
  Country: None (occurrence: None)
  Receive Date: 20090724
  Receipt Date: 20090720
  Transmission Date: 20100115
  Serious: Yes (Death)
  Sender: FDA-Public Use
  Company Number: DE-BAYER-200915236GPV

PATIENT
  Age: 60 Year
  Sex: Female
  Weight: 90 kg

DRUGS (21)
  1. CIPROBAY [Suspect]
     Indication: URINARY TRACT INFECTION
     Route: 048
     Dates: start: 20081107, end: 20081108
  2. CIPROBAY [Suspect]
     Route: 048
     Dates: start: 20081109, end: 20081110
  3. DIAZEPAM [Suspect]
     Indication: DRUG USE FOR UNKNOWN INDICATION
     Route: 048
     Dates: start: 20081021, end: 20081021
  4. DIAZEPAM [Suspect]
     Route: 048
     Dates: start: 20081104, end: 20081110
  5. DIAZEPAM [Suspect]
     Route: 048
     Dates: start: 20081102, end: 20081103
  6. DIAZEPAM [Suspect]
     Route: 048
     Dates: start: 20081031, end: 20081101
  7. DIAZEPAM [Suspect]
     Route: 048
     Dates: start: 20081029, end: 20081030
  8. DIAZEPAM [Suspect]
     Route: 048
     Dates: start: 20081028, end: 20081028
  9. DIAZEPAM [Suspect]
     Route: 048
     Dates: start: 20081027, end: 20081027
  10. DIAZEPAM [Suspect]
     Route: 048
     Dates: start: 20081022, end: 20081025
  11. DIAZEPAM [Suspect]
     Route: 048
     Dates: start: 20081022, end: 20081022
  12. TEGRETOL [Suspect]
     Indication: DRUG USE FOR UNKNOWN INDICATION
     Route: 048
     Dates: start: 20081028, end: 20081028
  13. TEGRETOL [Suspect]
     Route: 048
     Dates: start: 20081029, end: 20081110
  14. TEGRETOL [Suspect]
     Dosage: 400-900 MG
     Route: 048
     Dates: start: 20081021, end: 20081027
  15. SEROQUEL [Suspect]
     Indication: DRUG USE FOR UNKNOWN INDICATION
     Route: 048
     Dates: start: 20081104, end: 20081105
  16. SEROQUEL [Suspect]
     Route: 048
     Dates: start: 20081106, end: 20081110
  17. ISOPTIN [Suspect]
     Indication: DRUG USE FOR UNKNOWN INDICATION
     Route: 048
     Dates: end: 20081110
  18. SPIRIVA [Concomitant]
     Indication: CHRONIC OBSTRUCTIVE PULMONARY DISEASE
     Route: 065
  19. SEREVENT [Concomitant]
     Indication: CHRONIC OBSTRUCTIVE PULMONARY DISEASE
     Route: 055
  20. NOVALGIN [Concomitant]
     Indication: PYREXIA
     Route: 048
     Dates: start: 20081108, end: 20081109
  21. PARACETAMOL [Concomitant]
     Indication: PYREXIA
     Route: 048
     Dates: start: 20081108, end: 20081109

REACTIONS (2)
  - CARDIAC ARREST [None]
  - RESPIRATORY FAILURE [None]
